FAERS Safety Report 24840376 (Version 3)
Quarter: 2025Q1

REPORT INFORMATION
  Report Type: Report from Study
  Country: US (occurrence: US)
  Receive Date: 20250114
  Receipt Date: 20250323
  Transmission Date: 20250409
  Serious: Yes (Other)
  Sender: NOVARTIS
  Company Number: US-002147023-NVSC2025US004397

PATIENT
  Sex: Female

DRUGS (1)
  1. KESIMPTA [Suspect]
     Active Substance: OFATUMUMAB
     Indication: Multiple sclerosis
     Route: 058
     Dates: start: 20250310, end: 20250310

REACTIONS (11)
  - Loss of consciousness [Unknown]
  - Dyspnoea [Unknown]
  - Aphasia [Unknown]
  - Chest discomfort [Unknown]
  - Chest pain [Unknown]
  - Vertigo [Unknown]
  - Fall [Unknown]
  - Rash [Unknown]
  - Pyrexia [Unknown]
  - Pain in extremity [Unknown]
  - Fatigue [Unknown]
